FAERS Safety Report 4688742-4 (Version None)
Quarter: 2005Q2

REPORT INFORMATION
  Report Type: 
  Country: None (occurrence: None)
  Receive Date: 20050613
  Receipt Date: 20050602
  Transmission Date: 20051028
  Serious: Yes (Hospitalization)
  Sender: FDA-Public Use
  Company Number: PHBS2005JP08033

PATIENT
  Age: 15 Year
  Sex: Female

DRUGS (2)
  1. VOLTAREN [Suspect]
     Indication: PYREXIA
     Dosage: 100 MG/DAY
     Route: 048
  2. NAPROXEN [Concomitant]
     Dosage: 3 DF/DAY
     Route: 048

REACTIONS (1)
  - CYTOKINE STORM [None]
